FAERS Safety Report 10651706 (Version 1)
Quarter: 2014Q4

REPORT INFORMATION
  Report Type: Spontaneous
  Country: IT (occurrence: IT)
  Receive Date: 20141215
  Receipt Date: 20141215
  Transmission Date: 20150529
  Serious: Yes (Other)
  Sender: FDA-Public Use
  Company Number: IT-AMGEN-ITASP2014095818

PATIENT
  Age: 30 Year
  Sex: Female

DRUGS (3)
  1. ESTROGEN [Concomitant]
     Active Substance: ESTRONE\SUS SCROFA OVARY
     Route: 048
  2. NPLATE [Suspect]
     Active Substance: ROMIPLOSTIM
     Indication: IMMUNE THROMBOCYTOPENIC PURPURA
     Dosage: 7 MUG/KG, UNK
     Route: 065
     Dates: start: 201409
  3. PROGESTIN [Concomitant]
     Active Substance: PROGESTERONE
     Route: 048

REACTIONS (6)
  - Hepatomegaly [Unknown]
  - Pulmonary embolism [Unknown]
  - Drug effect incomplete [Unknown]
  - Lymphadenopathy [Unknown]
  - Embolism venous [Unknown]
  - Deep vein thrombosis [Unknown]

NARRATIVE: CASE EVENT DATE: 2014
